FAERS Safety Report 18260233 (Version 1)
Quarter: 2020Q3

REPORT INFORMATION
  Report Type: Spontaneous
  Country: US (occurrence: US)
  Receive Date: 20200913
  Receipt Date: 20200913
  Transmission Date: 20201103
  Serious: Yes (Other)
  Sender: FDA-Public Use
  Company Number: US-VALIDUS PHARMACEUTICALS LLC-US-2020VAL000744

PATIENT

DRUGS (19)
  1. NOVOLOG [Suspect]
     Active Substance: INSULIN ASPART
     Dosage: UNK, QD
     Route: 065
  2. NOVOLOG [Suspect]
     Active Substance: INSULIN ASPART
     Dosage: ONLY ADMINISTERD IF THE BLOOD GLUCOSE WAS GREATER THAN 150
     Route: 065
  3. NOVOLOG [Suspect]
     Active Substance: INSULIN ASPART
     Dosage: 30 UNITS/MEALS
     Route: 065
     Dates: start: 202007
  4. TRESIBA [Suspect]
     Active Substance: INSULIN DEGLUDEC
     Dosage: 80 UNITS
     Route: 065
     Dates: start: 20200713, end: 20200721
  5. FUROSEMIDE                         /00032602/ [Concomitant]
     Active Substance: FUROSEMIDE
     Indication: PRODUCT USED FOR UNKNOWN INDICATION
     Dosage: UNK
  6. LASIX [Suspect]
     Active Substance: FUROSEMIDE
     Indication: PRODUCT USED FOR UNKNOWN INDICATION
     Dosage: UNK
     Route: 065
     Dates: end: 20200809
  7. LYRICA [Concomitant]
     Active Substance: PREGABALIN
     Indication: PRODUCT USED FOR UNKNOWN INDICATION
     Dosage: UNK
  8. KORLYM [Suspect]
     Active Substance: MIFEPRISTONE
     Indication: CUSHING^S SYNDROME
     Dosage: 300 MG, QD
     Route: 048
     Dates: start: 20200625, end: 20200708
  9. NOVOLOG [Suspect]
     Active Substance: INSULIN ASPART
     Dosage: UNK, BID
     Route: 065
  10. TRESIBA [Suspect]
     Active Substance: INSULIN DEGLUDEC
     Indication: PRODUCT USED FOR UNKNOWN INDICATION
     Dosage: 100 UNITS
     Route: 065
     Dates: end: 20200713
  11. TRESIBA [Suspect]
     Active Substance: INSULIN DEGLUDEC
     Dosage: 69 UNITS
     Route: 065
     Dates: start: 20200721, end: 202007
  12. KORLYM [Suspect]
     Active Substance: MIFEPRISTONE
     Dosage: 600 MG, QD
     Route: 048
     Dates: start: 20200709, end: 20200809
  13. NOVOLOG [Suspect]
     Active Substance: INSULIN ASPART
     Indication: PRODUCT USED FOR UNKNOWN INDICATION
     Dosage: LOWER DOSE
     Route: 065
  14. CETIRIZINE                         /00884302/ [Concomitant]
     Active Substance: CETIRIZINE HYDROCHLORIDE
     Indication: PRODUCT USED FOR UNKNOWN INDICATION
     Dosage: UNK
  15. FAMOTIDINE. [Concomitant]
     Active Substance: FAMOTIDINE
     Indication: PRODUCT USED FOR UNKNOWN INDICATION
     Dosage: UNK
  16. NORTRIPTYLINE                      /00006502/ [Concomitant]
     Active Substance: NORTRIPTYLINE HYDROCHLORIDE
     Indication: PRODUCT USED FOR UNKNOWN INDICATION
     Dosage: UNK
  17. TRESIBA [Suspect]
     Active Substance: INSULIN DEGLUDEC
     Dosage: 60 UNITS
     Route: 065
     Dates: start: 202007
  18. LISINOPRIL                         /00894002/ [Concomitant]
     Active Substance: LISINOPRIL
     Indication: PRODUCT USED FOR UNKNOWN INDICATION
     Dosage: UNK
  19. TRESIBA [Suspect]
     Active Substance: INSULIN DEGLUDEC
     Dosage: 55 UNITS
     Route: 065
     Dates: start: 202007, end: 202007

REACTIONS (8)
  - Vaccination complication [Unknown]
  - Oedema [Recovered/Resolved]
  - Blood glucose increased [Unknown]
  - Postprandial hypoglycaemia [Recovering/Resolving]
  - Renal function test abnormal [Unknown]
  - Pruritus [Not Recovered/Not Resolved]
  - Blood pressure increased [Unknown]
  - Nausea [Unknown]

NARRATIVE: CASE EVENT DATE: 2020
